FAERS Safety Report 15472704 (Version 1)
Quarter: 2018Q4

REPORT INFORMATION
  Report Type: Spontaneous
  Country: FR (occurrence: FR)
  Receive Date: 20181008
  Receipt Date: 20181008
  Transmission Date: 20190205
  Serious: Yes (Other)
  Sender: FDA-Public Use
  Company Number: FR-ROCHE-2195647

PATIENT
  Age: 20 Year
  Sex: Male
  Weight: 84.5 kg

DRUGS (4)
  1. DIPRIVAN [Suspect]
     Active Substance: PROPOFOL
     Indication: SEDATION
     Route: 041
     Dates: start: 20180627, end: 20180717
  2. LEVETIRACETAM MYLAN [Suspect]
     Active Substance: LEVETIRACETAM
     Indication: EPILEPSY
     Route: 041
     Dates: start: 20180624
  3. RIVOTRIL [Suspect]
     Active Substance: CLONAZEPAM
     Indication: EPILEPSY
     Route: 041
     Dates: start: 20180624
  4. LOVENOX [Suspect]
     Active Substance: ENOXAPARIN SODIUM
     Indication: THROMBOSIS PROPHYLAXIS
     Route: 058
     Dates: start: 20180624

REACTIONS (1)
  - Hepatocellular injury [Recovering/Resolving]
